FAERS Safety Report 10869870 (Version 2)
Quarter: 2015Q2

REPORT INFORMATION
  Report Type: Spontaneous
  Country: DE (occurrence: DE)
  Receive Date: 20150226
  Receipt Date: 20150407
  Transmission Date: 20150821
  Serious: Yes (Life-Threatening, Hospitalization, Other)
  Sender: FDA-Public Use
  Company Number: DE-JNJFOC-20150211841

PATIENT
  Age: 20 Year
  Sex: Female
  Weight: 54.88 kg

DRUGS (3)
  1. JAYDESS [Suspect]
     Active Substance: LEVONORGESTREL
     Indication: CONTRACEPTION
     Dosage: 12 MCG/24 HR, CONT
     Route: 015
  2. XARELTO [Suspect]
     Active Substance: RIVAROXABAN
     Indication: ANTICOAGULANT THERAPY
     Route: 048
  3. YAZ [Suspect]
     Active Substance: DROSPIRENONE\ETHINYL ESTRADIOL
     Indication: ORAL CONTRACEPTION
     Route: 048
     Dates: start: 201404, end: 201406

REACTIONS (3)
  - Device expulsion [Unknown]
  - Pulmonary embolism [Recovered/Resolved]
  - Genital haemorrhage [Unknown]

NARRATIVE: CASE EVENT DATE: 20140604
